FAERS Safety Report 5725602-1 (Version None)
Quarter: 2008Q2

REPORT INFORMATION
  Report Type: 
  Country: None (occurrence: None)
  Receive Date: 20080501
  Receipt Date: 20080307
  Transmission Date: 20081010
  Serious: No
  Sender: FDA-Public Use
  Company Number: US-BOEHRINGER INGELHEIM GMBH, GERMANY-2008-BP-03518BP

PATIENT
  Age: 72 Year
  Sex: Male

DRUGS (9)
  1. MIRAPEX [Suspect]
     Indication: RESTLESS LEGS SYNDROME
     Route: 048
     Dates: start: 20080115
  2. FLOMAX [Suspect]
     Indication: BENIGN PROSTATIC HYPERPLASIA
     Route: 048
  3. PLAVIX [Concomitant]
  4. TOPROL-XL [Concomitant]
  5. NEXIUM [Concomitant]
  6. ALTACE [Concomitant]
  7. VYTORIN [Concomitant]
  8. ASPIRIN [Concomitant]
  9. COREG [Concomitant]

REACTIONS (3)
  - EYELID DISORDER [None]
  - MYALGIA [None]
  - VISION BLURRED [None]
